FAERS Safety Report 10994125 (Version 2)
Quarter: 2015Q2

REPORT INFORMATION
  Report Type: Spontaneous
  Country: US (occurrence: US)
  Receive Date: 20150407
  Receipt Date: 20150410
  Transmission Date: 20150821
  Serious: Yes (Hospitalization, Other)
  Sender: FDA-Public Use
  Company Number: US-TEVA-552059USA

PATIENT
  Age: 59 Year
  Sex: Female

DRUGS (1)
  1. COPAXONE [Suspect]
     Active Substance: GLATIRAMER ACETATE
     Indication: MULTIPLE SCLEROSIS
     Dates: start: 2014, end: 20150316

REACTIONS (4)
  - Wound infection staphylococcal [Not Recovered/Not Resolved]
  - Leg amputation [Not Recovered/Not Resolved]
  - Fall [Not Recovered/Not Resolved]
  - Open fracture [Not Recovered/Not Resolved]

NARRATIVE: CASE EVENT DATE: 20141126
